FAERS Safety Report 23416914 (Version 2)
Quarter: 2024Q1

REPORT INFORMATION
  Report Type: Report from Study
  Country: US (occurrence: US)
  Receive Date: 20240118
  Receipt Date: 20240312
  Transmission Date: 20240409
  Serious: Yes (Hospitalization)
  Sender: FDA-Public Use
  Company Number: US-GILEAD-2024-0658845

PATIENT
  Age: 16 Year
  Sex: Male

DRUGS (2)
  1. AZTREONAM LYSINE [Suspect]
     Active Substance: AZTREONAM LYSINE
     Indication: Tracheitis
     Dosage: 75 MG, TID VIA ALTERA NEBULIZER FOR 28 DAYS ON AND 28 DAYS OFF
     Route: 055
     Dates: start: 20230804
  2. AZTREONAM LYSINE [Suspect]
     Active Substance: AZTREONAM LYSINE
     Indication: Cerebral palsy

REACTIONS (6)
  - COVID-19 [Unknown]
  - Hypersensitivity [Unknown]
  - Rash [Unknown]
  - Swelling [Unknown]
  - Throat tightness [Unknown]
  - Off label use [Not Recovered/Not Resolved]
